FAERS Safety Report 6268061-5 (Version None)
Quarter: 2009Q3

REPORT INFORMATION
  Report Type: 
  Country: None (occurrence: None)
  Receive Date: 20090713
  Receipt Date: 20090630
  Transmission Date: 20100115
  Serious: Yes (Death, Hospitalization)
  Sender: FDA-Public Use
  Company Number: A-CH2009-23678

PATIENT
  Age: 50 Year
  Sex: Female

DRUGS (10)
  1. TRACLEER [Suspect]
     Indication: PULMONARY ARTERIAL HYPERTENSION
     Dosage: 250 MG, BID, ORAL 62.5 MG, BID, ORAL 125 MG, BID, ORAL
     Route: 048
     Dates: start: 20050520, end: 20050619
  2. TRACLEER [Suspect]
     Indication: PULMONARY ARTERIAL HYPERTENSION
     Dosage: 250 MG, BID, ORAL 62.5 MG, BID, ORAL 125 MG, BID, ORAL
     Route: 048
     Dates: start: 20050620, end: 20060813
  3. TRACLEER [Suspect]
     Indication: PULMONARY ARTERIAL HYPERTENSION
     Dosage: 250 MG, BID, ORAL 62.5 MG, BID, ORAL 125 MG, BID, ORAL
     Route: 048
     Dates: start: 20060814, end: 20070319
  4. TRACLEER [Suspect]
     Indication: PULMONARY ARTERIAL HYPERTENSION
     Dosage: 250 MG, BID, ORAL 62.5 MG, BID, ORAL 125 MG, BID, ORAL
     Route: 048
     Dates: start: 20070418, end: 20070522
  5. IMATINIB MESYLATE [Suspect]
     Dates: start: 20061211, end: 20070522
  6. PROPYLTHIOURACIL [Suspect]
     Dates: start: 20020806, end: 20070522
  7. DIURETICS [Concomitant]
  8. SILDENAFIL CITRATE [Concomitant]
  9. ILOPROST [Concomitant]
  10. ANTITHROMBOTIC AGENTS [Concomitant]

REACTIONS (21)
  - BLOOD PRESSURE IMMEASURABLE [None]
  - BLOOD SODIUM DECREASED [None]
  - CACHEXIA [None]
  - CARDIOMEGALY [None]
  - CHOLURIA [None]
  - CYTOLYTIC HEPATITIS [None]
  - GENERAL PHYSICAL HEALTH DETERIORATION [None]
  - HEPATIC FAILURE [None]
  - HEPATIC NECROSIS [None]
  - HEPATITIS TOXIC [None]
  - HEPATOMEGALY [None]
  - HEPATOTOXICITY [None]
  - HYPERHIDROSIS [None]
  - JAUNDICE [None]
  - LETHARGY [None]
  - MALAISE [None]
  - PROTHROMBIN TIME ABNORMAL [None]
  - RESPIRATORY DISORDER [None]
  - RESPIRATORY FAILURE [None]
  - RIGHT VENTRICULAR FAILURE [None]
  - SHOCK [None]
